FAERS Safety Report 21028043 (Version 1)
Quarter: 2022Q2

REPORT INFORMATION
  Report Type: Spontaneous
  Country: US (occurrence: US)
  Receive Date: 20220630
  Receipt Date: 20220630
  Transmission Date: 20220721
  Serious: No
  Sender: FDA-Public Use
  Company Number: US-PFIZER INC-202200908416

PATIENT
  Sex: Female

DRUGS (1)
  1. PAXLOVID [Suspect]
     Active Substance: NIRMATRELVIR\RITONAVIR
     Indication: COVID-19 treatment
     Dosage: 1 DF, 2X/DAY (ONE TABLET IN THE MORNING AND ONE TABLET IN THE EVENING)

REACTIONS (7)
  - Movement disorder [Unknown]
  - Feeling hot [Unknown]
  - Headache [Unknown]
  - Vomiting [Unknown]
  - Blood pressure increased [Unknown]
  - Rash [Unknown]
  - Incorrect dose administered [Unknown]
